FAERS Safety Report 4758174-9 (Version None)
Quarter: 2005Q3

REPORT INFORMATION
  Report Type: 
  Country: None (occurrence: None)
  Receive Date: 20050826
  Receipt Date: 20050629
  Transmission Date: 20060218
  Serious: No
  Sender: FDA-Public Use
  Company Number: WAES 0506USA04153

PATIENT
  Age: 63 Year
  Sex: Female

DRUGS (3)
  1. ZETIA [Suspect]
     Indication: BLOOD CHOLESTEROL INCREASED
     Dosage: 10MG/DAILY/PO
     Route: 048
     Dates: start: 20050129
  2. FOSAMAX [Concomitant]
  3. LIPITOR [Concomitant]

REACTIONS (1)
  - THYROID FUNCTION TEST ABNORMAL [None]
